FAERS Safety Report 14568191 (Version 2)
Quarter: 2018Q1

REPORT INFORMATION
  Report Type: Spontaneous
  Country: US (occurrence: US)
  Receive Date: 20180223
  Receipt Date: 20180228
  Transmission Date: 20180509
  Serious: Yes (Other)
  Sender: FDA-Public Use
  Company Number: US-BAUSCH-BL-2018-004679

PATIENT
  Sex: Male

DRUGS (2)
  1. SOOTHE XP [Suspect]
     Active Substance: LIGHT MINERAL OIL\MINERAL OIL
     Indication: DRY EYE
     Dosage: AS NEEDED
     Route: 047
     Dates: start: 2016
  2. SOOTHE XP [Suspect]
     Active Substance: LIGHT MINERAL OIL\MINERAL OIL
     Indication: EYE IRRITATION
     Dosage: EVENING, INSTILLED 10 DROPS IN BOTH EYES BUT ONLY THREE DROPS ENTERED THE EYES.
     Route: 047
     Dates: start: 20180215

REACTIONS (3)
  - Road traffic accident [Recovering/Resolving]
  - Eye injury [Recovering/Resolving]
  - Eye pain [Recovered/Resolved]
